FAERS Safety Report 19426114 (Version 5)
Quarter: 2021Q4

REPORT INFORMATION
  Report Type: Report from Study
  Country: None (occurrence: US)
  Receive Date: 20210617
  Receipt Date: 20211012
  Transmission Date: 20220303
  Serious: Yes (Hospitalization)
  Sender: FDA-Public Use
  Company Number: US-ABBVIE-21K-163-3947311-00

PATIENT
  Age: 79 Year
  Sex: Female

DRUGS (19)
  1. DUOPA [Suspect]
     Active Substance: CARBIDOPA\LEVODOPA
     Indication: Parkinson^s disease
     Route: 050
     Dates: start: 20161022
  2. DUOPA [Suspect]
     Active Substance: CARBIDOPA\LEVODOPA
  3. PATADAY [Concomitant]
     Active Substance: OLOPATADINE HYDROCHLORIDE
     Indication: Product used for unknown indication
     Dosage: BOTH EYES
  4. PROVENTIL [Concomitant]
     Active Substance: ALBUTEROL
     Indication: Product used for unknown indication
     Route: 055
  5. NASONEX [Concomitant]
     Active Substance: MOMETASONE FUROATE
     Indication: Product used for unknown indication
     Dosage: EACH NOST
  6. ASPIRIN [Concomitant]
     Active Substance: ASPIRIN
     Indication: Product used for unknown indication
     Route: 048
  7. ADVAIR HFA [Concomitant]
     Active Substance: FLUTICASONE PROPIONATE\SALMETEROL XINAFOATE
     Indication: Product used for unknown indication
     Dosage: 250-50 MCG
     Route: 055
  8. ALBUTEROL [Concomitant]
     Active Substance: ALBUTEROL
     Indication: Product used for unknown indication
     Dosage: NEB?0.63 MG/ML
  9. ACETAMINOPHEN\HYDROCODONE [Concomitant]
     Active Substance: ACETAMINOPHEN\HYDROCODONE
     Indication: Product used for unknown indication
     Dosage: 10-325 MG
     Route: 048
  10. OMEPRAZOLE [Concomitant]
     Active Substance: OMEPRAZOLE
     Indication: Product used for unknown indication
     Route: 048
  11. LIOTHYRONINE [Concomitant]
     Active Substance: LIOTHYRONINE
     Indication: Product used for unknown indication
     Route: 048
  12. VESICARE [Concomitant]
     Active Substance: SOLIFENACIN SUCCINATE
     Indication: Product used for unknown indication
     Route: 048
  13. LEVOTHYROXINE [Concomitant]
     Active Substance: LEVOTHYROXINE
     Indication: Product used for unknown indication
     Route: 048
  14. SINEMET [Concomitant]
     Active Substance: CARBIDOPA\LEVODOPA
     Indication: Product used for unknown indication
     Dosage: 25-250 MG
     Route: 048
  15. CALCIUM 600 + D3 PLUS MINERALS [Concomitant]
     Indication: Product used for unknown indication
     Dosage: 600-800 MG
     Route: 048
  16. IBUPROFEN [Concomitant]
     Active Substance: IBUPROFEN
     Indication: Product used for unknown indication
     Route: 048
  17. BETAMETHASONE\CLOTRIMAZOLE [Concomitant]
     Active Substance: BETAMETHASONE\CLOTRIMAZOLE
     Indication: Product used for unknown indication
     Dosage: 1 %- 0.05%
     Route: 061
  18. PFIZER-BIONTECH COVID-19 VACCINE [Concomitant]
     Active Substance: TOZINAMERAN
     Indication: COVID-19 immunisation
     Dosage: MFR- PFIZER
     Route: 030
     Dates: start: 202105, end: 202105
  19. PFIZER-BIONTECH COVID-19 VACCINE [Concomitant]
     Active Substance: TOZINAMERAN
     Dosage: MFR- PFIZER
     Route: 030
     Dates: start: 202105, end: 202105

REACTIONS (16)
  - Cellulitis [Unknown]
  - Spinal stenosis [Unknown]
  - Hypertonic bladder [Unknown]
  - Oesophageal pain [Unknown]
  - Anger [Unknown]
  - Anxiety disorder [Unknown]
  - Living in residential institution [Recovered/Resolved]
  - Gait inability [Recovered/Resolved]
  - Wound infection [Recovering/Resolving]
  - Drug ineffective [Unknown]
  - Medical device discomfort [Unknown]
  - Device dislocation [Unknown]
  - Weight decreased [Unknown]
  - Stoma site haemorrhage [Unknown]
  - Parkinson^s disease [Unknown]
  - Sepsis [Recovering/Resolving]

NARRATIVE: CASE EVENT DATE: 20210101
